FAERS Safety Report 15470277 (Version 4)
Quarter: 2018Q4

REPORT INFORMATION
  Report Type: Spontaneous
  Country: DE (occurrence: DE)
  Receive Date: 20181005
  Receipt Date: 20181205
  Transmission Date: 20190205
  Serious: Yes (Hospitalization, Other)
  Sender: FDA-Public Use
  Company Number: DE-PFIZER INC-2018396339

PATIENT
  Age: 49 Year
  Sex: Male

DRUGS (4)
  1. LEVETIRACETAM. [Suspect]
     Active Substance: LEVETIRACETAM
     Indication: EPILEPSY
     Dosage: 2000 MG, DAILY
     Route: 065
  2. LAMOTRIGINE. [Interacting]
     Active Substance: LAMOTRIGINE
     Dosage: 350 MG EVERY DAY
  3. VALPROIC ACID. [Interacting]
     Active Substance: VALPROIC ACID
     Dosage: 1200 MG EVERY DAY
     Route: 065
  4. LAMOTRIGINE. [Interacting]
     Active Substance: LAMOTRIGINE
     Indication: EPILEPSY
     Dosage: 200 MG, FREQUENCY NOT STATED

REACTIONS (5)
  - Drug level increased [Recovered/Resolved]
  - Anxiety [Recovered/Resolved]
  - Hallucination, visual [Recovered/Resolved]
  - Psychotic disorder [Recovered/Resolved]
  - Drug interaction [Recovered/Resolved]
